FAERS Safety Report 15743272 (Version 1)
Quarter: 2018Q4

REPORT INFORMATION
  Report Type: Spontaneous
  Country: FR (occurrence: FR)
  Receive Date: 20181220
  Receipt Date: 20181220
  Transmission Date: 20190205
  Serious: Yes (Hospitalization)
  Sender: FDA-Public Use
  Company Number: FR-TEVA-2018-FR-988784

PATIENT
  Age: 84 Year
  Sex: Female

DRUGS (12)
  1. TAVANIC [Interacting]
     Active Substance: LEVOFLOXACIN
     Indication: LUNG INFECTION
     Dosage: 500 MILLIGRAM DAILY;
     Route: 048
     Dates: start: 20120302, end: 20120305
  2. CYMBALTA [Concomitant]
     Active Substance: DULOXETINE HYDROCHLORIDE
     Dosage: 30 MILLIGRAM DAILY;
     Route: 048
  3. HEMIGOXINE NATIVELLE [Concomitant]
     Active Substance: DIGOXIN
     Dosage: 1 DOSAGE FORMS DAILY;
     Route: 048
  4. LYSANXIA [Concomitant]
     Active Substance: PRAZEPAM
     Dosage: 5 MILLIGRAM DAILY;
     Route: 048
  5. APROVEL [Concomitant]
     Active Substance: IRBESARTAN
     Dosage: 75 MILLIGRAM DAILY;
     Route: 048
  6. CARDENSIEL [Concomitant]
     Active Substance: BISOPROLOL FUMARATE
     Dosage: 5 MILLIGRAM DAILY;
     Route: 048
  7. PENTOXIFYLLINE. [Suspect]
     Active Substance: PENTOXIFYLLINE
     Indication: PRODUCT USED FOR UNKNOWN INDICATION
     Dosage: 10 MILLIGRAM DAILY;
     Route: 048
  8. MOVICOL [Concomitant]
     Active Substance: POLYETHYLENE GLYCOL 3350\POTASSIUM CHLORIDE\SODIUM BICARBONATE\SODIUM CHLORIDE
     Dosage: 1 DOSAGE FORMS DAILY;
     Route: 048
  9. EFFERALGAN [Concomitant]
     Active Substance: ACETAMINOPHEN
     Dosage: 1 GRAM DAILY;
     Route: 048
  10. PREVISCAN [FLUINDIONE] [Interacting]
     Active Substance: FLUINDIONE
     Indication: PRODUCT USED FOR UNKNOWN INDICATION
     Dosage: 10 MILLIGRAM DAILY;
     Route: 048
     Dates: end: 20120305
  11. EFFERALGAN [Concomitant]
     Active Substance: ACETAMINOPHEN
     Dosage: 1 GRAM DAILY;
     Route: 048
  12. MOGADON [Concomitant]
     Active Substance: NITRAZEPAM
     Dosage: 1 DOSAGE FORMS DAILY;
     Route: 048

REACTIONS (3)
  - Haematoma [Not Recovered/Not Resolved]
  - International normalised ratio increased [Recovered/Resolved]
  - Drug interaction [Recovered/Resolved]

NARRATIVE: CASE EVENT DATE: 20120303
